FAERS Safety Report 21004305 (Version 2)
Quarter: 2023Q1

REPORT INFORMATION
  Report Type: Spontaneous
  Country: US (occurrence: US)
  Receive Date: 20220624
  Receipt Date: 20230210
  Transmission Date: 20230418
  Serious: No
  Sender: FDA-Public Use
  Company Number: US-PFIZER INC-202200866823

PATIENT
  Age: 44 Year
  Sex: Female
  Weight: 81.65 kg

DRUGS (1)
  1. DIFLUCAN [Suspect]
     Active Substance: FLUCONAZOLE
     Indication: Fungal infection
     Dosage: 150 MG, SINGLE
     Route: 048
     Dates: start: 20220619, end: 20220619

REACTIONS (4)
  - Erythema [Unknown]
  - Blister [Not Recovered/Not Resolved]
  - Clamping of blood vessel [Not Recovered/Not Resolved]
  - Pruritus [Not Recovered/Not Resolved]

NARRATIVE: CASE EVENT DATE: 20220620
